FAERS Safety Report 21949254 (Version 1)
Quarter: 2023Q1

REPORT INFORMATION
  Report Type: Spontaneous
  Country: US (occurrence: None)
  Receive Date: 20230202
  Receipt Date: 20230202
  Transmission Date: 20230418
  Serious: No
  Sender: FDA-Public Use
  Company Number: None

PATIENT
  Age: 65 Year
  Sex: Male

DRUGS (2)
  1. GAMMAGARD [Suspect]
     Active Substance: HUMAN IMMUNOGLOBULIN G
     Dates: start: 20220623
  2. DEVICE [Suspect]
     Active Substance: DEVICE
     Indication: Hypogammaglobulinaemia
     Dosage: 25 GM EVERY 8 WEEKS IV
     Route: 042
     Dates: start: 20220623

REACTIONS (6)
  - Infusion related reaction [None]
  - Therapy interrupted [None]
  - Muscle tightness [None]
  - Feeling abnormal [None]
  - Device malfunction [None]
  - Incorrect dose administered [None]

NARRATIVE: CASE EVENT DATE: 20230124
